FAERS Safety Report 6987574-1 (Version None)
Quarter: 2010Q3

REPORT INFORMATION
  Report Type: 
  Country: None (occurrence: None)
  Receive Date: 20100916
  Receipt Date: 20100830
  Transmission Date: 20110219
  Serious: No
  Sender: FDA-Public Use
  Company Number: US-PFIZER INC-2010109044

PATIENT
  Sex: Female

DRUGS (2)
  1. AZITHROMYCIN [Suspect]
     Indication: SINUS DISORDER
  2. CLARITIN [Suspect]
     Indication: RHINORRHOEA
     Dosage: 10 MG, 1X/DAY
     Route: 048
     Dates: start: 20100810, end: 20100811

REACTIONS (1)
  - NAUSEA [None]
